FAERS Safety Report 10112049 (Version 4)
Quarter: 2014Q2

REPORT INFORMATION
  Report Type: Spontaneous
  Country: FR (occurrence: FR)
  Receive Date: 20140425
  Receipt Date: 20140522
  Transmission Date: 20141212
  Serious: Yes (Hospitalization)
  Sender: FDA-Public Use
  Company Number: FR-IPSEN BIOPHARMACEUTICALS, INC.-2014-1165

PATIENT
  Age: 3 Month
  Sex: Female
  Weight: 3.8 kg

DRUGS (7)
  1. INCRELEX [Suspect]
     Indication: INSULIN RESISTANCE SYNDROME
     Route: 058
     Dates: start: 20140212
  2. INCRELEX [Suspect]
     Indication: OFF LABEL USE
     Route: 058
  3. METFORMINE [Concomitant]
     Indication: INSULIN RESISTANCE SYNDROME
     Dosage: NOT REPORTED
     Route: 048
     Dates: start: 20140122
  4. L-THYROXINE [Concomitant]
     Indication: INSULIN RESISTANCE SYNDROME
     Dosage: 3 DROPS
     Route: 048
     Dates: start: 201311
  5. INEXIUM [Concomitant]
     Indication: INSULIN RESISTANCE SYNDROME
     Route: 048
     Dates: start: 20140123
  6. SPECIAFOLDINE [Concomitant]
     Indication: INSULIN RESISTANCE SYNDROME
     Dosage: NOT REPORTED
     Route: 048
     Dates: start: 201311
  7. FERROSTRANE [Concomitant]
     Indication: INSULIN RESISTANCE SYNDROME
     Dosage: NOT REPORTED
     Route: 048
     Dates: start: 201311

REACTIONS (1)
  - Hypertrophic cardiomyopathy [Recovering/Resolving]
